FAERS Safety Report 7844746-1 (Version None)
Quarter: 2011Q4

REPORT INFORMATION
  Report Type: 
  Country: None (occurrence: None)
  Receive Date: 20111025
  Receipt Date: 20111014
  Transmission Date: 20120403
  Serious: Yes (Other)
  Sender: FDA-Public Use
  Company Number: US-GLAXOSMITHKLINE-A0784397A

PATIENT
  Age: 51 Year
  Sex: Female
  Weight: 61.4 kg

DRUGS (9)
  1. METFORMIN HCL [Concomitant]
  2. INSULIN [Concomitant]
  3. AVANDIA [Suspect]
     Indication: DIABETES MELLITUS
     Dosage: 4MG TWICE PER DAY
     Route: 048
     Dates: start: 20030116, end: 20060801
  4. GLUCOPHAGE [Concomitant]
  5. LOPID [Concomitant]
  6. FISH OIL [Concomitant]
  7. AVANDAMET [Suspect]
     Indication: DIABETES MELLITUS
     Route: 048
     Dates: start: 20030424, end: 20060228
  8. VYTORIN [Concomitant]
  9. GLUCOTROL [Concomitant]

REACTIONS (3)
  - CEREBROVASCULAR ACCIDENT [None]
  - MYOCARDIAL INFARCTION [None]
  - AMNESIA [None]
